FAERS Safety Report 5385146-6 (Version None)
Quarter: 2007Q3

REPORT INFORMATION
  Report Type: 
  Country: None (occurrence: None)
  Receive Date: 20070709
  Receipt Date: 20070629
  Transmission Date: 20080115
  Serious: Yes (Death)
  Sender: FDA-Public Use
  Company Number: 430003E07DEU

PATIENT
  Age: 72 Year
  Sex: Male

DRUGS (3)
  1. NOVANTRONE [Suspect]
     Dosage: 14 MG, INTRAVENOUS
     Route: 042
     Dates: start: 20060910, end: 20060914
  2. CYTARABINE [Suspect]
     Dosage: 200 MG, INTRAVENOUS
     Route: 042
     Dates: start: 20060910, end: 20060916
  3. ETOPOSIDE [Suspect]
     Dosage: 200 MG, INTRAVENOUS
     Route: 042
     Dates: start: 20060910, end: 20060912

REACTIONS (5)
  - ASPERGILLOSIS [None]
  - MULTI-ORGAN FAILURE [None]
  - PERITONEAL EFFUSION [None]
  - PLEURAL EFFUSION [None]
  - SEPSIS [None]
